FAERS Safety Report 24364400 (Version 2)
Quarter: 2024Q4

REPORT INFORMATION
  Report Type: Report from Study
  Country: US (occurrence: US)
  Receive Date: 20240926
  Receipt Date: 20241021
  Transmission Date: 20250115
  Serious: Yes (Other)
  Sender: INSMED
  Company Number: US-INSMED, INC.-2024-03633-US

PATIENT
  Sex: Male

DRUGS (1)
  1. ARIKAYCE [Suspect]
     Active Substance: AMIKACIN
     Indication: Mycobacterium avium complex infection
     Dosage: UNK, UNK
     Route: 055
     Dates: start: 20240907, end: 202410

REACTIONS (8)
  - Condition aggravated [Unknown]
  - Pulmonary congestion [Unknown]
  - Increased viscosity of bronchial secretion [Unknown]
  - Respiratory tract congestion [Unknown]
  - Sputum retention [Unknown]
  - Adverse drug reaction [Unknown]
  - Unevaluable event [Unknown]
  - Dyspnoea [Unknown]

NARRATIVE: CASE EVENT DATE: 20240101
